FAERS Safety Report 5916358-8 (Version None)
Quarter: 2008Q4

REPORT INFORMATION
  Report Type: 
  Country: None (occurrence: None)
  Receive Date: 20081013
  Receipt Date: 20081002
  Transmission Date: 20090506
  Serious: Yes (Hospitalization, Disabling)
  Sender: FDA-Public Use
  Company Number: PHHO2008DE05961

PATIENT
  Weight: 90.1 kg

DRUGS (3)
  1. RAD 666 RAD+TAB [Suspect]
     Indication: RENAL TRANSPLANT
     Dosage: 0.75 MG, BID
     Route: 048
     Dates: start: 20080423
  2. RAD 666 RAD+TAB [Suspect]
     Dosage: 0.5 MG, BID
     Route: 048
  3. NEORAL [Suspect]
     Dosage: 70 MG, BID
     Route: 048
     Dates: start: 20080123

REACTIONS (4)
  - INFECTION [None]
  - LYMPHOCELE [None]
  - NEPHROLITHIASIS [None]
  - OEDEMA PERIPHERAL [None]
